FAERS Safety Report 6148599-1 (Version None)
Quarter: 2009Q2

REPORT INFORMATION
  Report Type: 
  Country: None (occurrence: None)
  Receive Date: 20090408
  Receipt Date: 20090327
  Transmission Date: 20091009
  Serious: Yes (Other)
  Sender: FDA-Public Use
  Company Number: FR-ELI_LILLY_AND_COMPANY-FR200903007793

PATIENT
  Age: 50 Year
  Sex: Female
  Weight: 117 kg

DRUGS (2)
  1. CYMBALTA [Suspect]
     Indication: BIPOLAR DISORDER
     Dosage: 60 MG, DAILY (1/D)
     Route: 048
     Dates: start: 20090201, end: 20090301
  2. LITHIUM CARBONATE [Concomitant]
     Indication: BIPOLAR DISORDER
     Dosage: UNK, UNKNOWN
     Route: 048

REACTIONS (4)
  - HEPATIC ENZYME INCREASED [None]
  - HEPATIC STEATOSIS [None]
  - NAUSEA [None]
  - VOMITING [None]
